FAERS Safety Report 14725787 (Version 6)
Quarter: 2018Q4

REPORT INFORMATION
  Report Type: Spontaneous
  Country: GB (occurrence: GB)
  Receive Date: 20180406
  Receipt Date: 20181009
  Transmission Date: 20190204
  Serious: Yes (Death, Life-Threatening, Hospitalization, Other)
  Sender: FDA-Public Use
  Company Number: GB-AUROBINDO-AUR-APL-2018-018216

PATIENT
  Age: 54 Year
  Sex: Male

DRUGS (7)
  1. METHYLPREDNISOLONE. [Suspect]
     Active Substance: METHYLPREDNISOLONE
     Indication: RASH MACULO-PAPULAR
     Dosage: 1 GRAM, DAILY
     Route: 042
  2. ZEVALIN [Concomitant]
     Active Substance: IBRITUMOMAB TIUXETAN
     Indication: LYMPHOMA
     Dosage: UNK
     Route: 065
  3. ALLOPURINOL. [Suspect]
     Active Substance: ALLOPURINOL
     Indication: PROPHYLAXIS
     Dosage: UNK
     Route: 065
  4. NIVOLUMAB [Suspect]
     Active Substance: NIVOLUMAB
     Indication: LYMPHOMA
     Dosage: 3 MG/KG, UNK
     Route: 065
  5. RITUXIMAB. [Concomitant]
     Active Substance: RITUXIMAB
     Indication: LYMPHOMA
     Dosage: UNK
     Route: 065
  6. FLUCONAZOLE HARD CAPSULES [Suspect]
     Active Substance: FLUCONAZOLE
     Indication: PROPHYLAXIS
     Dosage: UNK
  7. COTRIMOXAZOLE [Suspect]
     Active Substance: SULFAMETHOXAZOLE\TRIMETHOPRIM
     Indication: PROPHYLAXIS
     Dosage: UNK
     Route: 065

REACTIONS (11)
  - Product use in unapproved indication [Unknown]
  - Staphylococcal infection [Fatal]
  - Respiratory failure [Fatal]
  - Aspergillus infection [Fatal]
  - Candida infection [Fatal]
  - Blindness [Fatal]
  - Bronchopulmonary aspergillosis [Fatal]
  - Hypercapnia [Unknown]
  - Multiple organ dysfunction syndrome [Fatal]
  - Pneumonia [Fatal]
  - Toxic epidermal necrolysis [Fatal]
